FAERS Safety Report 9165182 (Version 1)
Quarter: 2013Q1

REPORT INFORMATION
  Report Type: Spontaneous
  Country: US (occurrence: US)
  Receive Date: 20130315
  Receipt Date: 20130315
  Transmission Date: 20140127
  Serious: Yes (Other)
  Sender: FDA-Public Use
  Company Number: US-ASTELLAS-2013US002836

PATIENT
  Sex: Male

DRUGS (2)
  1. XTANDI [Suspect]
     Indication: PRODUCT USED FOR UNKNOWN INDICATION
     Dosage: UNK
     Route: 048
     Dates: start: 201211
  2. XTANDI [Suspect]
     Dosage: UNK
     Route: 048
     Dates: start: 201302

REACTIONS (2)
  - Palpitations [Recovered/Resolved]
  - Cardiac flutter [Recovered/Resolved]
